FAERS Safety Report 6138910-X (Version None)
Quarter: 2009Q1

REPORT INFORMATION
  Report Type: 
  Country: None (occurrence: None)
  Receive Date: 20090331
  Receipt Date: 20090324
  Transmission Date: 20090719
  Serious: Yes (Other)
  Sender: FDA-Public Use
  Company Number: BR-B.I. PHARMACEUTICALS,INC./RIDGEFIELD-2009-BR-00245BR

PATIENT
  Sex: Male

DRUGS (2)
  1. ATENSINA [Suspect]
     Indication: HYPERTENSION
     Route: 048
     Dates: end: 20090323
  2. DICLOFENAC [Concomitant]

REACTIONS (2)
  - BLOOD PRESSURE INCREASED [None]
  - SOMNOLENCE [None]
